FAERS Safety Report 22838406 (Version 7)
Quarter: 2024Q1

REPORT INFORMATION
  Report Type: Spontaneous
  Country: US (occurrence: US)
  Receive Date: 20230818
  Receipt Date: 20240103
  Transmission Date: 20240410
  Serious: Yes (Other)
  Sender: FDA-Public Use
  Company Number: US-PFIZER INC-PV202300058087

PATIENT
  Age: 69 Year
  Sex: Male

DRUGS (4)
  1. RETACRIT [Suspect]
     Active Substance: EPOETIN ALFA-EPBX
     Indication: Chemotherapy
     Dosage: 20000 IU, WEEKLY
  2. RETACRIT [Suspect]
     Active Substance: EPOETIN ALFA-EPBX
     Indication: End stage renal disease
     Dosage: 40000 IU, WEEKLY (EVERY 7 DAYS)
     Route: 058
  3. RETACRIT [Suspect]
     Active Substance: EPOETIN ALFA-EPBX
     Indication: Myelodysplastic syndrome
     Dosage: 10000 IU
  4. RETACRIT [Suspect]
     Active Substance: EPOETIN ALFA-EPBX
     Dosage: 40000 IU/ML, WEEKLY (FREQUENCY: Q 7 DAYS)
     Route: 058

REACTIONS (2)
  - Myelodysplastic syndrome [Unknown]
  - Product prescribing error [Unknown]
